FAERS Safety Report 24540100 (Version 1)
Quarter: 2024Q4

REPORT INFORMATION
  Report Type: Spontaneous
  Country: US (occurrence: None)
  Receive Date: 20241023
  Receipt Date: 20241023
  Transmission Date: 20250115
  Serious: No
  Sender: Public
  Company Number: None

PATIENT
  Age: 76 Year
  Sex: Male
  Weight: 73.48 kg

DRUGS (8)
  1. BENZONATATE [Suspect]
     Active Substance: BENZONATATE
     Indication: Cough
     Dosage: FREQUENCY : EVERY 8 HOURS;?
     Route: 048
     Dates: end: 20240830
  2. BENZONATATE [Suspect]
     Active Substance: BENZONATATE
     Indication: Pulmonary congestion
  3. ALBUTEROL SULFATE [Suspect]
     Active Substance: ALBUTEROL SULFATE
     Indication: Cough
     Dosage: FREQUENCY : EVERY 6 HOURS;?
     Route: 055
     Dates: end: 20240904
  4. ALBUTEROL SULFATE [Suspect]
     Active Substance: ALBUTEROL SULFATE
     Indication: Pulmonary congestion
  5. ATENOLOL [Concomitant]
     Active Substance: ATENOLOL
  6. METFORMIN [Concomitant]
     Active Substance: METFORMIN HYDROCHLORIDE
  7. CLARITIN [Concomitant]
     Active Substance: LORATADINE
  8. VITAMINS [Concomitant]
     Active Substance: VITAMINS

REACTIONS (3)
  - Dizziness [None]
  - Throat tightness [None]
  - Chest pain [None]

NARRATIVE: CASE EVENT DATE: 20240823
